FAERS Safety Report 11774268 (Version 2)
Quarter: 2016Q1

REPORT INFORMATION
  Report Type: Spontaneous
  Country: ES (occurrence: ES)
  Receive Date: 20151124
  Receipt Date: 20160104
  Transmission Date: 20160525
  Serious: Yes (Other)
  Sender: FDA-Public Use
  Company Number: ES-VIIV HEALTHCARE LIMITED-ES2015GSK158669

PATIENT
  Age: 44 Year
  Sex: Male

DRUGS (8)
  1. MARAVIROC [Suspect]
     Active Substance: MARAVIROC
     Indication: HIV INFECTION
     Dosage: UNK
     Dates: start: 2010
  2. LYRICA [Concomitant]
     Active Substance: PREGABALIN
  3. ETRAVIRINE [Concomitant]
     Active Substance: ETRAVIRINE
     Dosage: UNK
     Dates: start: 2010
  4. DEPAKINE [Concomitant]
     Active Substance: VALPROATE SODIUM
  5. PSICOTRIC [Concomitant]
     Active Substance: QUETIAPINE FUMARATE
  6. TRANKIMAZIN [Concomitant]
     Active Substance: ALPRAZOLAM
  7. HARVONI [Interacting]
     Active Substance: LEDIPASVIR\SOFOSBUVIR
     Indication: HEPATITIS C
     Dosage: UNK
     Dates: start: 20150624, end: 201509
  8. RALTEGRAVIR. [Concomitant]
     Active Substance: RALTEGRAVIR
     Dosage: UNK
     Dates: start: 2010

REACTIONS (4)
  - Hepatitis acute [Recovered/Resolved]
  - Transaminases increased [Recovered/Resolved]
  - Alanine aminotransferase increased [Recovered/Resolved]
  - Drug interaction [Recovered/Resolved]
